FAERS Safety Report 12832421 (Version 1)
Quarter: 2016Q4

REPORT INFORMATION
  Report Type: Spontaneous
  Country: US (occurrence: US)
  Receive Date: 20161010
  Receipt Date: 20161010
  Transmission Date: 20170207
  Serious: No
  Sender: FDA-Public Use
  Company Number: US-JAZZ-2016-US-013319

PATIENT
  Sex: Female

DRUGS (17)
  1. ALPRAZOLAM. [Concomitant]
     Active Substance: ALPRAZOLAM
  2. CABERGOLINE. [Concomitant]
     Active Substance: CABERGOLINE
  3. PRILOSEC [Concomitant]
     Active Substance: OMEPRAZOLE MAGNESIUM
  4. XYREM [Suspect]
     Active Substance: SODIUM OXYBATE
     Indication: CATAPLEXY
     Dosage: 3 G, BID
     Route: 048
     Dates: start: 201507
  5. LEVOTHYROXIN [Concomitant]
     Active Substance: LEVOTHYROXINE
  6. ZOMIG [Concomitant]
     Active Substance: ZOLMITRIPTAN
  7. B COMPLEX WITH VITAMIN C [Concomitant]
  8. ROBITUSSIN COUGH + CHEST CONGESTION [Concomitant]
  9. FERROUS SULFATE. [Concomitant]
     Active Substance: FERROUS SULFATE
  10. KLONOPIN [Concomitant]
     Active Substance: CLONAZEPAM
  11. DOSTINEX [Concomitant]
     Active Substance: CABERGOLINE
  12. XYREM [Suspect]
     Active Substance: SODIUM OXYBATE
     Indication: NARCOLEPSY
     Dosage: 4.5 G, BID
     Route: 048
     Dates: start: 200910, end: 2013
  13. MUCINEX D [Concomitant]
     Active Substance: GUAIFENESIN\PSEUDOEPHEDRINE HYDROCHLORIDE
  14. CELEXA [Concomitant]
     Active Substance: CITALOPRAM HYDROBROMIDE
  15. METHYLPHENIDATE. [Concomitant]
     Active Substance: METHYLPHENIDATE
  16. CLONAZEPAM. [Concomitant]
     Active Substance: CLONAZEPAM
  17. CONCERTA [Concomitant]
     Active Substance: METHYLPHENIDATE HYDROCHLORIDE

REACTIONS (2)
  - Migraine [Unknown]
  - Anxiety [Unknown]
